FAERS Safety Report 6681372-4 (Version None)
Quarter: 2010Q2

REPORT INFORMATION
  Report Type: 
  Country: None (occurrence: None)
  Receive Date: 20100414
  Receipt Date: 20100401
  Transmission Date: 20101027
  Serious: Yes (Hospitalization)
  Sender: FDA-Public Use
  Company Number: A0852997A

PATIENT
  Age: 73 Year
  Sex: Male

DRUGS (3)
  1. AVODART [Suspect]
     Dosage: .5MG PER DAY
     Route: 048
  2. ATENOLOL [Concomitant]
  3. AVAPRO [Concomitant]

REACTIONS (3)
  - ATRIAL FIBRILLATION [None]
  - DIVERTICULUM [None]
  - HEART RATE INCREASED [None]
